FAERS Safety Report 9658946 (Version 1)
Quarter: 2013Q4

REPORT INFORMATION
  Report Type: Spontaneous
  Country: US (occurrence: US)
  Receive Date: 20131031
  Receipt Date: 20131031
  Transmission Date: 20140711
  Serious: No
  Sender: FDA-Public Use
  Company Number: US-B.I. PHARMACEUTICALS,INC./RIDGEFIELD-2013-BI-33375BP

PATIENT
  Sex: Female

DRUGS (3)
  1. ZANTAC 150 (RANITIDINE HYDROCHLORIDE) [Suspect]
     Indication: PROPHYLAXIS AGAINST GASTROINTESTINAL ULCER
  2. BENEDRYL [Concomitant]
     Indication: REACTION TO FOOD COLOURING
  3. PREDNISONE [Concomitant]
     Indication: REACTION TO FOOD COLOURING

REACTIONS (1)
  - Off label use [Unknown]
